FAERS Safety Report 24862157 (Version 1)
Quarter: 2025Q1

REPORT INFORMATION
  Report Type: Report from Study
  Country: IN (occurrence: IN)
  Receive Date: 20250120
  Receipt Date: 20250120
  Transmission Date: 20250409
  Serious: Yes (Death)
  Sender: CIPLA
  Company Number: IN-CIPLA LTD.-2025IN00339

PATIENT

DRUGS (6)
  1. WARFARIN [Suspect]
     Active Substance: WARFARIN
     Indication: Anticoagulant therapy
     Route: 048
     Dates: start: 202409
  2. ASPIRIN\ATORVASTATIN [Concomitant]
     Active Substance: ASPIRIN\ATORVASTATIN
     Indication: Product used for unknown indication
     Route: 065
  3. DIAPRIDE M [Concomitant]
     Indication: Product used for unknown indication
     Route: 065
  4. TORSINEX PLUS [Concomitant]
     Indication: Product used for unknown indication
     Route: 065
  5. AMLONG MT [Concomitant]
     Indication: Product used for unknown indication
     Route: 065
  6. GLUVILDA M [Concomitant]
     Indication: Product used for unknown indication
     Route: 065

REACTIONS (2)
  - Headache [Fatal]
  - Hypotension [Fatal]
